FAERS Safety Report 7573136-4 (Version None)
Quarter: 2011Q2

REPORT INFORMATION
  Report Type: 
  Country: None (occurrence: None)
  Receive Date: 20110620
  Receipt Date: 20110613
  Transmission Date: 20111010
  Serious: Yes (Death)
  Sender: FDA-Public Use
  Company Number: BR-001807

PATIENT
  Age: 17 Year
  Sex: Female

DRUGS (2)
  1. NAGLAZYME [Suspect]
     Indication: MUCOPOLYSACCHARIDOSIS VI
     Dosage: (INTRAVENOUS DRIP)
     Route: 041
     Dates: start: 20081201
  2. ANTIBIOTICS [Concomitant]

REACTIONS (7)
  - PLEURAL EFFUSION [None]
  - DYSPNOEA [None]
  - PNEUMONIA [None]
  - PYREXIA [None]
  - SEPSIS [None]
  - ABDOMINAL PAIN [None]
  - CARDIO-RESPIRATORY ARREST [None]
